FAERS Safety Report 5012049-9 (Version None)
Quarter: 2006Q2

REPORT INFORMATION
  Report Type: 
  Country: None (occurrence: None)
  Receive Date: 20060526
  Receipt Date: 20060310
  Transmission Date: 20061013
  Serious: Yes (Life-Threatening)
  Sender: FDA-Public Use
  Company Number: JP-GLAXOSMITHKLINE-B0415622A

PATIENT
  Age: 51 Year
  Sex: Male

DRUGS (26)
  1. HEPSERA [Suspect]
     Indication: HEPATIC CIRRHOSIS
     Dosage: 10MG PER DAY
     Route: 048
     Dates: start: 20031118
  2. ZEFIX [Suspect]
     Indication: HEPATIC CIRRHOSIS
     Dosage: 100MG PER DAY
     Route: 048
     Dates: start: 20020201
  3. PROGRAF [Concomitant]
     Route: 048
  4. BUFFERIN [Concomitant]
     Dosage: 81MG PER DAY
     Route: 048
  5. URSO [Concomitant]
     Route: 048
  6. GLAKAY [Concomitant]
     Route: 048
  7. TAKEPRON [Concomitant]
     Route: 048
  8. MUCOSTA [Concomitant]
     Route: 048
  9. GASMOTIN [Concomitant]
     Route: 048
  10. UNSPECIFIED DRUG [Concomitant]
     Route: 048
  11. SEROTONE [Concomitant]
     Route: 042
  12. ISOVORIN [Concomitant]
     Route: 042
  13. FLUOROURACIL [Concomitant]
     Route: 042
  14. PRIMPERAN TAB [Concomitant]
  15. SOLU-CORTEF [Concomitant]
  16. CHLOR-TRIMETON [Concomitant]
  17. OXALIPLATIN [Concomitant]
     Route: 042
  18. MEROPEN [Concomitant]
     Route: 042
  19. VITAJECT [Concomitant]
     Route: 042
  20. GLOBULIN [Concomitant]
     Route: 042
  21. KENALOG [Concomitant]
  22. VOLTAREN [Concomitant]
     Route: 048
  23. TRANSAMIN [Concomitant]
     Route: 048
  24. ALLOID G [Concomitant]
     Route: 048
  25. GASTER D [Concomitant]
     Route: 048
  26. RHYTHMY [Concomitant]
     Route: 048

REACTIONS (4)
  - BLOOD BILIRUBIN INCREASED [None]
  - JAUNDICE [None]
  - METASTASES TO ABDOMINAL CAVITY [None]
  - METASTASES TO LYMPH NODES [None]
